FAERS Safety Report 11374433 (Version 3)
Quarter: 2015Q3

REPORT INFORMATION
  Report Type: Report from Study
  Country: JP (occurrence: JP)
  Receive Date: 20150813
  Receipt Date: 20150929
  Transmission Date: 20151125
  Serious: Yes (Hospitalization)
  Sender: FDA-Public Use
  Company Number: JP-AMGEN-JPNCT2015071366

PATIENT
  Age: 76 Year
  Sex: Male
  Weight: 59.8 kg

DRUGS (12)
  1. PANITUMUMAB [Suspect]
     Active Substance: PANITUMUMAB
     Indication: COLON CANCER
     Dosage: 307.2 MG, Q2WEEKS
     Route: 041
     Dates: start: 20150317, end: 20150622
  2. ALOXI [Concomitant]
     Active Substance: PALONOSETRON HYDROCHLORIDE
     Indication: PROPHYLAXIS OF NAUSEA AND VOMITING
     Dosage: 0.75 MG, UNK
     Route: 042
     Dates: start: 20150317, end: 20150727
  3. DEXART [Concomitant]
     Active Substance: DEXAMETHASONE SODIUM PHOSPHATE
     Indication: PROPHYLAXIS OF NAUSEA AND VOMITING
     Dosage: 4.4 MG, UNK
     Route: 042
     Dates: start: 20150317, end: 20150727
  4. OXALIPLATIN. [Suspect]
     Active Substance: OXALIPLATIN
     Indication: COLON CANCER
     Dosage: 123.5 MG, Q2WEEKS
     Route: 041
     Dates: start: 20150317, end: 20150622
  5. 5-FU                               /00098801/ [Suspect]
     Active Substance: FLUOROURACIL
     Dosage: 2760 MG, Q2WEEKS
     Route: 041
     Dates: start: 20150727, end: 20150729
  6. PANITUMUMAB [Suspect]
     Active Substance: PANITUMUMAB
     Dosage: 307.2 MG, Q2WEEKS
     Route: 041
     Dates: start: 20150727
  7. OXALIPLATIN. [Suspect]
     Active Substance: OXALIPLATIN
     Dosage: 85 MG, Q2WEEKS
     Route: 041
     Dates: start: 20150727, end: 20150727
  8. ISOVORIN                           /06682103/ [Concomitant]
     Active Substance: LEUCOVORIN CALCIUM
     Dosage: 348.4 MG, Q2WEEKS
     Route: 041
     Dates: start: 20150727, end: 20150727
  9. ISOVORIN                           /06682103/ [Concomitant]
     Active Substance: LEUCOVORIN CALCIUM
     Indication: COLON CANCER
     Dosage: 348.4 MG, Q2WEEKS
     Route: 041
     Dates: start: 20150317, end: 20150622
  10. PROEMEND [Concomitant]
     Active Substance: FOSAPREPITANT
     Indication: PROPHYLAXIS OF NAUSEA AND VOMITING
     Dosage: 150 MG, UNK
     Route: 041
     Dates: start: 20150317, end: 20150727
  11. 5-FU                               /00098801/ [Suspect]
     Active Substance: FLUOROURACIL
     Indication: COLON CANCER
     Dosage: 348.4 MG, Q2WEEKS
     Route: 040
     Dates: start: 20150317, end: 20150622
  12. 5-FU                               /00098801/ [Suspect]
     Active Substance: FLUOROURACIL
     Dosage: 3470 MG, Q2WEEKS
     Route: 041
     Dates: start: 20150317, end: 20150624

REACTIONS (3)
  - Cholangitis [Recovering/Resolving]
  - Neutrophil count decreased [Recovered/Resolved]
  - Malaise [Recovering/Resolving]

NARRATIVE: CASE EVENT DATE: 20150703
